FAERS Safety Report 5442097-6 (Version None)
Quarter: 2007Q3

REPORT INFORMATION
  Report Type: 
  Country: None (occurrence: None)
  Receive Date: 20070904
  Receipt Date: 20070823
  Transmission Date: 20080115
  Serious: Yes (Congenital Anomaly)
  Sender: FDA-Public Use
  Company Number: GB-ROCHE-513226

PATIENT
  Age: 27 Year
  Sex: Female

DRUGS (2)
  1. CELLCEPT [Suspect]
     Dosage: INDICATION: IMMUNOSUPPRESSION AND PROPHYLAXIS AGAINST LIVER TRANSPLANT REJECTION.
     Route: 048
     Dates: start: 20060301
  2. NEORAL [Concomitant]
     Indication: IMMUNOSUPPRESSION
     Route: 048

REACTIONS (3)
  - ABORTION SPONTANEOUS [None]
  - CONGENITAL ANOMALY [None]
  - DRUG EXPOSURE DURING PREGNANCY [None]
